FAERS Safety Report 9842737 (Version 1)
Quarter: 2014Q1

REPORT INFORMATION
  Report Type: Spontaneous
  Country: GB (occurrence: GB)
  Receive Date: 20140124
  Receipt Date: 20140124
  Transmission Date: 20141002
  Serious: Yes (Other)
  Sender: FDA-Public Use
  Company Number: GB-ELI_LILLY_AND_COMPANY-GB201401006799

PATIENT
  Age: 24 Year
  Sex: Male

DRUGS (2)
  1. GEMCITABINE HYDROCHLORIDE [Suspect]
     Indication: TESTIS CANCER
     Route: 042
  2. OXALIPLATIN [Suspect]
     Indication: TESTIS CANCER

REACTIONS (4)
  - Thrombocytopenia [Recovering/Resolving]
  - Haemorrhage [Unknown]
  - Haemoglobin decreased [None]
  - Melaena [None]
